FAERS Safety Report 24539231 (Version 1)
Quarter: 2024Q4

REPORT INFORMATION
  Report Type: Report from Study
  Country: US (occurrence: US)
  Receive Date: 20241023
  Receipt Date: 20241023
  Transmission Date: 20250115
  Serious: Yes (Other)
  Sender: RANBAXY
  Company Number: US-SUN PHARMACEUTICAL INDUSTRIES LTD-2024R1-474515

PATIENT
  Age: 58 Year
  Sex: Male

DRUGS (4)
  1. AZITHROMYCIN [Suspect]
     Active Substance: AZITHROMYCIN
     Indication: Chronic lymphocytic leukaemia
     Dosage: UNK
     Route: 065
  2. QUININE [Suspect]
     Active Substance: QUININE
     Indication: Chronic lymphocytic leukaemia
     Dosage: UNK
     Route: 065
  3. CLINDAMYCIN [Suspect]
     Active Substance: CLINDAMYCIN
     Indication: Chronic lymphocytic leukaemia
     Dosage: UNK
     Route: 065
  4. ATOVAQUONE [Suspect]
     Active Substance: ATOVAQUONE
     Indication: Chronic lymphocytic leukaemia
     Dosage: UNK
     Route: 065

REACTIONS (1)
  - Disease recurrence [Unknown]
